FAERS Safety Report 11666962 (Version 1)
Quarter: 2015Q4

REPORT INFORMATION
  Report Type: Spontaneous
  Country: US (occurrence: US)
  Receive Date: 20151027
  Receipt Date: 20151027
  Transmission Date: 20160304
  Serious: No
  Sender: FDA-Public Use
  Company Number: US-ELI_LILLY_AND_COMPANY-US201002004325

PATIENT
  Age: 33 Year
  Sex: Female

DRUGS (5)
  1. PRIMIDONE. [Concomitant]
     Active Substance: PRIMIDONE
     Dosage: 250 MG, 2/D
  2. TOPAMAX [Concomitant]
     Active Substance: TOPIRAMATE
     Dosage: 300 MG, 2/D
  3. PROZAC [Concomitant]
     Active Substance: FLUOXETINE HYDROCHLORIDE
     Dosage: 20 MG, DAILY (1/D)
  4. FORTEO [Suspect]
     Active Substance: TERIPARATIDE
     Indication: OSTEOPOROSIS
     Dosage: 20 UG, DAILY (1/D)
     Dates: start: 20090815, end: 20100209
  5. LAMICTAL [Concomitant]
     Active Substance: LAMOTRIGINE
     Dosage: 125 MG, 2/D

REACTIONS (1)
  - Upper limb fracture [Recovering/Resolving]

NARRATIVE: CASE EVENT DATE: 20100209
